FAERS Safety Report 9372054 (Version 1)
Quarter: 2013Q2

REPORT INFORMATION
  Report Type: Report from Study
  Country: US (occurrence: US)
  Receive Date: 20130627
  Receipt Date: 20130627
  Transmission Date: 20140414
  Serious: Yes (Death)
  Sender: FDA-Public Use
  Company Number: US-MYLANLABS-2012S1013886

PATIENT
  Age: 55 Year
  Sex: Male

DRUGS (11)
  1. CLOZAPINE TABLETS [Suspect]
     Dosage: 300MG IN MORNING AND 400MG AT BEDTIME
     Route: 048
  2. CLOZAPINE TABLETS [Suspect]
     Dosage: 300MG IN MORNING AND 400MG AT BEDTIME
     Route: 048
  3. METFORMIN [Concomitant]
  4. DOXAZOSIN [Concomitant]
  5. DEPOKOTE [Concomitant]
  6. GLIPIZIDE [Concomitant]
  7. PROPRANOLOL [Concomitant]
     Dosage: ER
  8. CLONIDINE [Concomitant]
  9. LISINOPRIL [Concomitant]
  10. NORVASC [Concomitant]
  11. LANTUS [Concomitant]

REACTIONS (1)
  - Myocardial infarction [Fatal]
